FAERS Safety Report 16500839 (Version 1)
Quarter: 2019Q3

REPORT INFORMATION
  Report Type: Spontaneous
  Country: US (occurrence: US)
  Receive Date: 20190628
  Receipt Date: 20190628
  Transmission Date: 20191004
  Serious: Yes (Hospitalization, Other)
  Sender: FDA-Public Use
  Company Number: None

PATIENT
  Age: 57 Year
  Sex: Female
  Weight: 107.1 kg

DRUGS (1)
  1. JANUVIA [Suspect]
     Active Substance: SITAGLIPTIN PHOSPHATE
     Indication: TYPE 3 DIABETES MELLITUS
     Route: 048
     Dates: start: 20190425

REACTIONS (4)
  - Cardiomyopathy [None]
  - Cardiomegaly [None]
  - Coronary artery disease [None]
  - Cardiac failure acute [None]

NARRATIVE: CASE EVENT DATE: 20190617
